FAERS Safety Report 14023988 (Version 1)
Quarter: 2017Q3

REPORT INFORMATION
  Report Type: Spontaneous
  Country: US (occurrence: US)
  Receive Date: 20170928
  Receipt Date: 20170928
  Transmission Date: 20171128
  Serious: No
  Sender: FDA-Public Use
  Company Number: US-SA-2016SA230468

PATIENT
  Age: 43 Year
  Sex: Female

DRUGS (4)
  1. GRALISE [Concomitant]
     Active Substance: GABAPENTIN
  2. CARBAMAZEPINE. [Concomitant]
     Active Substance: CARBAMAZEPINE
  3. SERTRALINE [Concomitant]
     Active Substance: SERTRALINE HYDROCHLORIDE
  4. AUBAGIO [Suspect]
     Active Substance: TERIFLUNOMIDE
     Indication: MULTIPLE SCLEROSIS
     Route: 048
     Dates: start: 20151119

REACTIONS (1)
  - Trigeminal neuralgia [Unknown]

NARRATIVE: CASE EVENT DATE: 20161212
